FAERS Safety Report 11661412 (Version 1)
Quarter: 2015Q4

REPORT INFORMATION
  Report Type: Spontaneous
  Country: US (occurrence: US)
  Receive Date: 20151026
  Receipt Date: 20151026
  Transmission Date: 20160304
  Serious: Yes (Other)
  Sender: FDA-Public Use
  Company Number: US-SA-2015SA165877

PATIENT
  Age: 27 Year
  Sex: Female

DRUGS (2)
  1. LOVENOX [Suspect]
     Active Substance: ENOXAPARIN SODIUM
     Indication: PREGNANCY
     Route: 065
     Dates: end: 201509
  2. LOVENOX [Suspect]
     Active Substance: ENOXAPARIN SODIUM
     Indication: FACTOR V DEFICIENCY
     Route: 065
     Dates: end: 201509

REACTIONS (2)
  - Foetal death [Unknown]
  - Exposure during pregnancy [Unknown]
